FAERS Safety Report 7062808-6 (Version None)
Quarter: 2010Q4

REPORT INFORMATION
  Report Type: 
  Country: None (occurrence: None)
  Receive Date: 20101026
  Receipt Date: 20101012
  Transmission Date: 20110411
  Serious: Yes (Other)
  Sender: FDA-Public Use
  Company Number: US-AMGEN-USASP2010001025

PATIENT

DRUGS (3)
  1. NPLATE [Suspect]
     Indication: IDIOPATHIC THROMBOCYTOPENIC PURPURA
     Dosage: 85 A?G, UNK
     Dates: start: 20100326, end: 20100428
  2. CORTICOSTEROIDS [Concomitant]
     Dosage: UNK
     Dates: start: 20100222
  3. RITUXIMAB [Concomitant]
     Dosage: UNK
     Dates: start: 20071006

REACTIONS (1)
  - PLATELET COUNT INCREASED [None]
